FAERS Safety Report 5016566-7 (Version None)
Quarter: 2006Q2

REPORT INFORMATION
  Report Type: 
  Country: None (occurrence: None)
  Receive Date: 20060418
  Receipt Date: 20060213
  Transmission Date: 20061013
  Serious: Yes (Other)
  Sender: FDA-Public Use
  Company Number: 24782

PATIENT
  Age: 58 Year
  Sex: Female

DRUGS (1)
  1. FLOXURIDINE [Suspect]
     Indication: PANCREATIC CARCINOMA
     Dosage: 6400MG/IV/ONCE WEEKLY FOR 3 W
     Route: 042
     Dates: start: 20050201

REACTIONS (1)
  - HEPATIC ENZYME INCREASED [None]
